FAERS Safety Report 10017248 (Version 1)
Quarter: 2014Q1

REPORT INFORMATION
  Report Type: Spontaneous
  Country: US (occurrence: None)
  Receive Date: 20140313
  Receipt Date: 20140313
  Transmission Date: 20141002
  Serious: Yes (Other)
  Sender: FDA-Public Use
  Company Number: None

PATIENT
  Age: 6 Year
  Sex: Male
  Weight: 19.05 kg

DRUGS (1)
  1. CONCERTA [Suspect]
     Indication: ATTENTION DEFICIT/HYPERACTIVITY DISORDER
     Route: 048
     Dates: start: 20140307, end: 20140312

REACTIONS (14)
  - Disturbance in attention [None]
  - Sleep disorder [None]
  - Drug ineffective [None]
  - Product substitution issue [None]
  - Product quality issue [None]
  - Dysphagia [None]
  - Psychomotor hyperactivity [None]
  - Abnormal behaviour [None]
  - Logorrhoea [None]
  - Educational problem [None]
  - Disturbance in attention [None]
  - Agitation [None]
  - Aggression [None]
  - Fight in school [None]
